FAERS Safety Report 16754216 (Version 1)
Quarter: 2019Q3

REPORT INFORMATION
  Report Type: Spontaneous
  Country: US (occurrence: US)
  Receive Date: 20190710
  Receipt Date: 20190710
  Transmission Date: 20191005
  Serious: Yes (Death)
  Sender: FDA-Public Use
  Company Number: None

PATIENT
  Age: 82 Year
  Sex: Female

DRUGS (16)
  1. LETAIRIS [Suspect]
     Active Substance: AMBRISENTAN
     Route: 048
     Dates: start: 201208, end: 201905
  2. FUROSEMIDE. [Concomitant]
     Active Substance: FUROSEMIDE
  3. VITAMIN B12 [Concomitant]
     Active Substance: CYANOCOBALAMIN
  4. CLONAZEPAM. [Concomitant]
     Active Substance: CLONAZEPAM
  5. LETAIRIS [Suspect]
     Active Substance: AMBRISENTAN
     Indication: PULMONARY ARTERIAL HYPERTENSION
  6. XXXXXXXX HFA [Concomitant]
  7. OXYGEN SUPPLEMENTAL [Concomitant]
     Active Substance: OXYGEN
  8. SILDENAFIL. [Concomitant]
     Active Substance: SILDENAFIL
  9. XXXX OPHL DROP [Concomitant]
  10. RANITIDINE?? [Concomitant]
  11. FLONASE [Concomitant]
     Active Substance: FLUTICASONE PROPIONATE
  12. DILU-XR [Concomitant]
  13. ADVAIR DISKUS [Concomitant]
     Active Substance: FLUTICASONE PROPIONATE\SALMETEROL XINAFOATE
  14. POTASSIUM CHLORIDE. [Concomitant]
     Active Substance: POTASSIUM CHLORIDE
  15. CALCIUM CARBONATE-VIL [Concomitant]
  16. D3 PER DHA [Concomitant]

REACTIONS (3)
  - Chronic respiratory failure [None]
  - Infection [None]
  - Atrial flutter [None]

NARRATIVE: CASE EVENT DATE: 20190531
